FAERS Safety Report 23486838 (Version 1)
Quarter: 2024Q1

REPORT INFORMATION
  Report Type: Spontaneous
  Country: CN (occurrence: CN)
  Receive Date: 20240206
  Receipt Date: 20240206
  Transmission Date: 20240410
  Serious: Yes (Other)
  Sender: FDA-Public Use
  Company Number: CN-PFIZER INC-PV202400016255

PATIENT
  Age: 83 Year
  Sex: Female

DRUGS (4)
  1. DIFLUCAN [Suspect]
     Active Substance: FLUCONAZOLE
     Indication: Symptomatic treatment
     Dosage: 0.4 G, 2X/DAY
     Route: 041
     Dates: start: 20240106, end: 20240112
  2. DIFLUCAN [Suspect]
     Active Substance: FLUCONAZOLE
     Indication: Anti-infective therapy
  3. MEROPENEM [Suspect]
     Active Substance: MEROPENEM
     Indication: Symptomatic treatment
     Dosage: 1 G, 3X/DAY
     Route: 041
     Dates: start: 20240104, end: 20240112
  4. SODIUM CHLORIDE [Concomitant]
     Active Substance: SODIUM CHLORIDE
     Indication: Anti-infective therapy
     Dosage: UNK, 2X/DAY
     Dates: start: 20240106, end: 20240112

REACTIONS (5)
  - Insomnia [Recovering/Resolving]
  - Restlessness [Recovering/Resolving]
  - Disorganised speech [Recovering/Resolving]
  - Delirium [Recovering/Resolving]
  - Off label use [Unknown]

NARRATIVE: CASE EVENT DATE: 20240106
